FAERS Safety Report 9753979 (Version 1)
Quarter: 2013Q4

REPORT INFORMATION
  Report Type: Spontaneous
  Country: US (occurrence: US)
  Receive Date: 20131213
  Receipt Date: 20131213
  Transmission Date: 20140711
  Serious: No
  Sender: FDA-Public Use
  Company Number: US-GLAXOSMITHKLINE-A1003532A

PATIENT
  Age: 72 Year
  Sex: Female

DRUGS (4)
  1. NICORETTE NICOTINE POLACRILEX LOZENGE, 4MG [Suspect]
     Indication: EX-TOBACCO USER
     Dates: start: 20121123, end: 20121129
  2. NICORETTE NICOTINE POLACRILEX LOZENGE, 2MG [Suspect]
     Indication: EX-TOBACCO USER
  3. ANTIBIOTIC [Concomitant]
  4. METHYLPREDNISONE [Concomitant]

REACTIONS (2)
  - Accidental exposure to product [Unknown]
  - Drug ineffective [Unknown]
